FAERS Safety Report 11625881 (Version 8)
Quarter: 2016Q2

REPORT INFORMATION
  Report Type: Spontaneous
  Country: US (occurrence: US)
  Receive Date: 20151013
  Receipt Date: 20160630
  Transmission Date: 20160815
  Serious: Yes (Hospitalization)
  Sender: FDA-Public Use
  Company Number: US-PFIZER INC-2015326153

PATIENT
  Age: 52 Year
  Sex: Male
  Weight: 95 kg

DRUGS (7)
  1. AMLODIPINE [Concomitant]
     Active Substance: AMLODIPINE BESYLATE
     Dosage: 10 MG, UNK
     Dates: start: 201603
  2. SUTENT [Suspect]
     Active Substance: SUNITINIB MALATE
     Dosage: 50 MG, CYCLIC (2 WEEKS ON, 1 WEEK OFF)
     Dates: start: 20160118
  3. SUTENT [Suspect]
     Active Substance: SUNITINIB MALATE
     Indication: RENAL CANCER STAGE IV
     Dosage: 50 MG, 1X/DAY
     Dates: start: 201508
  4. SUTENT [Suspect]
     Active Substance: SUNITINIB MALATE
     Dosage: 50 MG (4 CAPSULE -12.5 MG) DAILY CYCLIC (28 DAYS ON, 14 DAYS OFF)
     Dates: start: 20150907
  5. LEVOTHYROXINE. [Concomitant]
     Active Substance: LEVOTHYROXINE
     Dosage: UNK
     Dates: start: 201605
  6. SYNTHROID [Concomitant]
     Active Substance: LEVOTHYROXINE SODIUM
     Dosage: 75 UG, UNK (75 MCG)
  7. LABETALOL [Concomitant]
     Active Substance: LABETALOL\LABETALOL HYDROCHLORIDE
     Dosage: 100 MG, UNK

REACTIONS (27)
  - Skin disorder [Not Recovered/Not Resolved]
  - Blood creatinine increased [Recovered/Resolved]
  - Weight decreased [Unknown]
  - Thyroid disorder [Not Recovered/Not Resolved]
  - Abdominal discomfort [Not Recovered/Not Resolved]
  - Pain [Unknown]
  - Dysgeusia [Recovered/Resolved]
  - Rash [Recovered/Resolved]
  - Constipation [Not Recovered/Not Resolved]
  - Vomiting [Recovered/Resolved]
  - Dyspepsia [Not Recovered/Not Resolved]
  - Hypotension [Recovered/Resolved]
  - Skin exfoliation [Not Recovered/Not Resolved]
  - Skin hypertrophy [Unknown]
  - Dehydration [Unknown]
  - Malaise [Not Recovered/Not Resolved]
  - Weight increased [Unknown]
  - Decreased appetite [Unknown]
  - Diarrhoea [Recovered/Resolved]
  - Nausea [Recovered/Resolved]
  - Epigastric discomfort [Unknown]
  - Asthenia [Unknown]
  - Fatigue [Unknown]
  - Arthralgia [Not Recovered/Not Resolved]
  - White blood cell count decreased [Unknown]
  - Viral infection [Unknown]
  - Dry skin [Recovering/Resolving]

NARRATIVE: CASE EVENT DATE: 201508
